FAERS Safety Report 14748276 (Version 1)
Quarter: 2018Q2

REPORT INFORMATION
  Report Type: Spontaneous
  Country: US (occurrence: US)
  Receive Date: 20180411
  Receipt Date: 20180411
  Transmission Date: 20180711
  Serious: No
  Sender: FDA-Public Use
  Company Number: US-IMPAX LABORATORIES, INC-2017-IPXL-02977

PATIENT
  Age: 20 Year
  Sex: Male

DRUGS (3)
  1. GLYBURIDE + METFORMIN [Suspect]
     Active Substance: GLYBURIDE\METFORMIN HYDROCHLORIDE
     Indication: TYPE 2 DIABETES MELLITUS
     Dosage: 5/500 MG, ONCE IN A WHILE
     Route: 065
  2. JANUVIA [Suspect]
     Active Substance: SITAGLIPTIN PHOSPHATE
     Indication: TYPE 2 DIABETES MELLITUS
     Dosage: UNK
     Route: 065
  3. GLYBURIDE + METFORMIN [Suspect]
     Active Substance: GLYBURIDE\METFORMIN HYDROCHLORIDE
     Dosage: FOR ABOUT ONE WEEK, UNK
     Route: 065
     Dates: start: 2017, end: 2017

REACTIONS (1)
  - Expired product administered [Unknown]

NARRATIVE: CASE EVENT DATE: 2017
